FAERS Safety Report 6693276-1 (Version None)
Quarter: 2010Q2

REPORT INFORMATION
  Report Type: 
  Country: None (occurrence: None)
  Receive Date: 20100421
  Receipt Date: 20100421
  Transmission Date: 20101027
  Serious: Yes (Other)
  Sender: FDA-Public Use
  Company Number: None

PATIENT
  Age: 9 Year
  Sex: Male
  Weight: 30.7992 kg

DRUGS (1)
  1. RISPERDAL [Suspect]
     Dosage: 0.25MG 4 TABS/DAY MOUTH

REACTIONS (3)
  - IRRITABILITY [None]
  - MOOD ALTERED [None]
  - PRODUCT SUBSTITUTION ISSUE [None]
